FAERS Safety Report 8029038-2 (Version None)
Quarter: 2012Q1

REPORT INFORMATION
  Report Type: 
  Country: None (occurrence: None)
  Receive Date: 20120106
  Receipt Date: 20120105
  Transmission Date: 20120608
  Serious: Yes (Death)
  Sender: FDA-Public Use
  Company Number: US-ELI_LILLY_AND_COMPANY-US201112002784

PATIENT
  Sex: Male
  Weight: 78.912 kg

DRUGS (3)
  1. ALIMTA [Suspect]
     Indication: LUNG NEOPLASM MALIGNANT
     Dosage: UNK UNK, UNKNOWN
     Route: 042
     Dates: start: 20110902
  2. FOLIC ACID [Concomitant]
     Dosage: 1 MG, UNKNOWN
     Route: 065
     Dates: start: 20110718
  3. VITAMIN B-12 [Concomitant]
     Dosage: 1 MG, UNKNOWN
     Route: 065
     Dates: start: 20110718

REACTIONS (1)
  - NEOPLASM MALIGNANT [None]
